FAERS Safety Report 19056996 (Version 1)
Quarter: 2021Q1

REPORT INFORMATION
  Report Type: Report from Study
  Country: CO (occurrence: CO)
  Receive Date: 20210325
  Receipt Date: 20210325
  Transmission Date: 20210420
  Serious: Yes (Hospitalization)
  Sender: FDA-Public Use
  Company Number: NVSC2021CO044904

PATIENT
  Sex: Female

DRUGS (2)
  1. TAFINLAR [Suspect]
     Active Substance: DABRAFENIB MESYLATE
     Indication: METASTATIC MALIGNANT MELANOMA
     Dosage: 150 MG, Q12H
     Route: 048
  2. MEKINIST [Suspect]
     Active Substance: TRAMETINIB DIMETHYL SULFOXIDE
     Indication: METASTATIC MALIGNANT MELANOMA
     Dosage: 2 MG, QD
     Route: 048

REACTIONS (13)
  - Pruritus [Recovered/Resolved]
  - Bone pain [Recovering/Resolving]
  - Nausea [Recovering/Resolving]
  - Fatigue [Recovered/Resolved]
  - Pyrexia [Recovering/Resolving]
  - Vomiting [Recovering/Resolving]
  - Chills [Recovering/Resolving]
  - Illness [Unknown]
  - Headache [Unknown]
  - Anxiety [Recovered/Resolved]
  - Hypersensitivity [Recovered/Resolved]
  - Pain in extremity [Recovered/Resolved]
  - Somnolence [Recovered/Resolved]
